FAERS Safety Report 10286192 (Version 1)
Quarter: 2014Q3

REPORT INFORMATION
  Report Type: Spontaneous
  Country: US (occurrence: US)
  Receive Date: 20140709
  Receipt Date: 20140709
  Transmission Date: 20150326
  Serious: Yes (Hospitalization)
  Sender: FDA-Public Use
  Company Number: US-BAYER-2014-101566

PATIENT

DRUGS (1)
  1. ALEVE [Suspect]
     Active Substance: NAPROXEN SODIUM
     Indication: ABDOMINAL PAIN
     Dosage: 3 DF, EVERY 6-8 HOURS
     Dates: start: 20140627

REACTIONS (4)
  - Haemorrhage [None]
  - Extra dose administered [None]
  - Pain [None]
  - Gastrointestinal disorder [None]

NARRATIVE: CASE EVENT DATE: 20140627
